FAERS Safety Report 5916246-7 (Version None)
Quarter: 2008Q4

REPORT INFORMATION
  Report Type: 
  Country: None (occurrence: None)
  Receive Date: 20081013
  Receipt Date: 20081006
  Transmission Date: 20090506
  Serious: Yes (Other)
  Sender: FDA-Public Use
  Company Number: US-AVENTIS-200816570US

PATIENT
  Sex: Male
  Weight: 83.92 kg

DRUGS (2)
  1. LANTUS [Suspect]
     Dosage: DOSE: 10-16 U QD AT HS
     Route: 058
     Dates: start: 20080901, end: 20080925
  2. MICRONASE [Concomitant]

REACTIONS (3)
  - ANGINA PECTORIS [None]
  - BLOOD GLUCOSE INCREASED [None]
  - DYSPNOEA [None]
